FAERS Safety Report 11940788 (Version 1)
Quarter: 2016Q1

REPORT INFORMATION
  Report Type: Spontaneous
  Country: PL (occurrence: PL)
  Receive Date: 20160122
  Receipt Date: 20160122
  Transmission Date: 20160526
  Serious: Yes (Death, Other)
  Sender: FDA-Public Use
  Company Number: PL-TEVA-626642ACC

PATIENT
  Sex: Female

DRUGS (7)
  1. DICLODUO 75 MG [Concomitant]
     Indication: PAIN
     Dosage: 1 DOSAGE FORMS DAILY;
     Route: 048
  2. GASEC 20 [Concomitant]
     Dosage: 1 DOSAGE FORMS DAILY;
     Route: 048
  3. GABAPENTIN TEVA 300 MG [Suspect]
     Active Substance: GABAPENTIN
     Indication: NEURALGIA
     Dosage: 6 DOSAGE FORMS DAILY;
     Route: 048
     Dates: start: 201211, end: 201401
  4. LYRICA [Suspect]
     Active Substance: PREGABALIN
     Indication: NEURALGIA
     Dates: start: 201204
  5. POLTRAM COMBO [Suspect]
     Active Substance: ACETAMINOPHEN\TRAMADOL HYDROCHLORIDE
     Indication: NEURALGIA
     Dosage: 3 DOSAGE FORMS DAILY;
     Route: 048
     Dates: start: 201211, end: 201401
  6. FAXOLET ER 150 MG [Concomitant]
     Indication: NEURALGIA
     Dosage: 1 DOSAGE FORMS DAILY;
     Route: 048
     Dates: start: 201305, end: 201401
  7. FAXOLET ER 75 MG [Concomitant]
     Indication: NEURALGIA
     Dosage: 1 DOSAGE FORMS DAILY;
     Route: 048
     Dates: start: 201303, end: 201305

REACTIONS (6)
  - Colon cancer [Fatal]
  - Balance disorder [Unknown]
  - Eyelid ptosis [Unknown]
  - Eyelid oedema [Unknown]
  - Hyperhidrosis [Unknown]
  - Gastric disorder [Unknown]

NARRATIVE: CASE EVENT DATE: 2012
